FAERS Safety Report 8112640-7 (Version None)
Quarter: 2012Q1

REPORT INFORMATION
  Report Type: 
  Country: None (occurrence: None)
  Receive Date: 20120203
  Receipt Date: 20120120
  Transmission Date: 20120608
  Serious: Yes (Hospitalization)
  Sender: FDA-Public Use
  Company Number: FR-ROCHE-1035215

PATIENT
  Sex: Female

DRUGS (5)
  1. VENTOLIN [Concomitant]
  2. EBASTINE [Concomitant]
  3. XOLAIR [Suspect]
     Indication: ASTHMA
  4. FLUTICASONE PROPIONATE/SALMETEROL [Concomitant]
  5. SINGULAIR [Concomitant]

REACTIONS (1)
  - SENSORY DISTURBANCE [None]
